FAERS Safety Report 4854533-4 (Version None)
Quarter: 2005Q4

REPORT INFORMATION
  Report Type: 
  Country: None (occurrence: None)
  Receive Date: 20051215
  Receipt Date: 20051103
  Transmission Date: 20060501
  Serious: Yes (Hospitalization)
  Sender: FDA-Public Use
  Company Number: US-ROCHE-423567

PATIENT
  Age: 53 Year
  Sex: Male
  Weight: 60 kg

DRUGS (21)
  1. RIBAVIRIN [Suspect]
     Indication: HEPATITIS C
     Route: 048
     Dates: start: 20050406, end: 20051003
  2. RIBAVIRIN [Suspect]
     Route: 048
     Dates: start: 20051104
  3. PEG-INTERFERON ALFA 2A (RO 25-8310) [Suspect]
     Indication: HEPATITIS C
     Route: 058
     Dates: start: 20050406, end: 20051003
  4. PEG-INTERFERON ALFA 2A (RO 25-8310) [Suspect]
     Route: 058
     Dates: start: 20051104
  5. MYCOPHENOLATE MOFETIL [Suspect]
     Indication: DRUG USE FOR UNKNOWN INDICATION
     Route: 065
     Dates: start: 20041223, end: 20051011
  6. PROTONIX [Concomitant]
     Dates: start: 20041101
  7. ASPIRIN [Concomitant]
     Dates: start: 20041223
  8. GLYBURIDE [Concomitant]
     Dates: start: 20041223
  9. VICODIN [Concomitant]
     Dates: start: 20041223
  10. INSULIN [Concomitant]
     Dosage: 1 UNIT DAILY AS OF 27 DEC 2004, 6 UNITS DAILY FROM 05 MAR 2005 ONGOING.
     Dates: start: 20041227
  11. MAGNESIUM OXIDE [Concomitant]
     Dates: start: 20050106
  12. FLORINEF ACETATE [Concomitant]
     Dates: start: 20050403
  13. TRAMADOL HCL [Concomitant]
     Dates: start: 20050506
  14. FOLIC ACID [Concomitant]
     Dates: start: 20050820
  15. BACTRIM [Concomitant]
     Dosage: FORM: PILL.
     Dates: start: 20050912
  16. PAXIL [Concomitant]
     Dates: start: 20050919
  17. ATIVAN [Concomitant]
     Dates: start: 20050920
  18. TACROLIMUS [Concomitant]
     Dates: start: 20041223
  19. PREDNISONE [Concomitant]
     Dates: start: 20041215
  20. PROCRIT [Concomitant]
     Dates: start: 20050909
  21. NEUPOGEN [Concomitant]
     Dates: start: 20050429

REACTIONS (3)
  - HEADACHE [None]
  - PANCYTOPENIA [None]
  - SPLENOMEGALY [None]
